FAERS Safety Report 25578374 (Version 1)
Quarter: 2025Q3

REPORT INFORMATION
  Report Type: Spontaneous
  Country: EU (occurrence: EU)
  Receive Date: 20250718
  Receipt Date: 20250718
  Transmission Date: 20251020
  Serious: Yes (Other)
  Sender: FRESENIUS KABI
  Company Number: None

PATIENT
  Age: 70 Year
  Sex: Male
  Weight: 106 kg

DRUGS (25)
  1. OXALIPLATIN [Suspect]
     Active Substance: OXALIPLATIN
     Indication: Rectal adenocarcinoma
     Route: 042
     Dates: start: 20250505, end: 20250505
  2. OXALIPLATIN [Suspect]
     Active Substance: OXALIPLATIN
     Route: 042
     Dates: start: 20250521, end: 20250521
  3. IRINOTECAN [Suspect]
     Active Substance: IRINOTECAN
     Indication: Rectal adenocarcinoma
     Route: 042
     Dates: start: 20250505, end: 20250505
  4. IRINOTECAN [Suspect]
     Active Substance: IRINOTECAN
     Route: 042
     Dates: start: 20250521, end: 20250521
  5. IRINOTECAN [Suspect]
     Active Substance: IRINOTECAN
     Route: 042
     Dates: start: 20250605, end: 20250605
  6. ONDANSETRON [Suspect]
     Active Substance: ONDANSETRON
     Indication: Antiemetic supportive care
     Route: 048
     Dates: start: 20250505, end: 20250505
  7. ONDANSETRON [Suspect]
     Active Substance: ONDANSETRON
     Route: 048
     Dates: start: 20250521, end: 20250521
  8. ONDANSETRON [Suspect]
     Active Substance: ONDANSETRON
     Route: 048
     Dates: start: 20250605, end: 20250605
  9. FLUOROURACIL [Suspect]
     Active Substance: FLUOROURACIL
     Indication: Rectal adenocarcinoma
     Route: 042
     Dates: start: 20250505, end: 20250506
  10. FLUOROURACIL [Suspect]
     Active Substance: FLUOROURACIL
     Route: 042
     Dates: start: 20250521, end: 20250522
  11. FLUOROURACIL [Suspect]
     Active Substance: FLUOROURACIL
     Route: 042
     Dates: start: 20250605, end: 20250606
  12. LEVOLEUCOVORIN CALCIUM [Suspect]
     Active Substance: LEVOLEUCOVORIN CALCIUM
     Indication: Rectal adenocarcinoma
     Route: 042
     Dates: start: 20250505, end: 20250506
  13. LEVOLEUCOVORIN CALCIUM [Suspect]
     Active Substance: LEVOLEUCOVORIN CALCIUM
     Route: 042
     Dates: start: 20250521, end: 20250522
  14. LEVOLEUCOVORIN CALCIUM [Suspect]
     Active Substance: LEVOLEUCOVORIN CALCIUM
     Route: 042
     Dates: start: 20250605, end: 20250606
  15. APREPITANT [Suspect]
     Active Substance: APREPITANT
     Indication: Antiemetic supportive care
     Route: 048
     Dates: start: 20250505, end: 20250505
  16. APREPITANT [Suspect]
     Active Substance: APREPITANT
     Route: 048
     Dates: start: 20250506, end: 20250507
  17. APREPITANT [Suspect]
     Active Substance: APREPITANT
     Route: 048
     Dates: start: 20250521, end: 20250521
  18. APREPITANT [Suspect]
     Active Substance: APREPITANT
     Route: 048
     Dates: start: 20250522, end: 20250523
  19. APREPITANT [Suspect]
     Active Substance: APREPITANT
     Route: 048
     Dates: start: 20250605, end: 20250605
  20. APREPITANT [Suspect]
     Active Substance: APREPITANT
     Route: 048
     Dates: start: 20250606, end: 20250607
  21. METHYLPREDNISOLONE [Suspect]
     Active Substance: METHYLPREDNISOLONE
     Indication: Antiemetic supportive care
     Route: 048
     Dates: start: 20250505, end: 20250505
  22. METHYLPREDNISOLONE [Suspect]
     Active Substance: METHYLPREDNISOLONE
     Route: 048
     Dates: start: 20250521, end: 20250521
  23. METHYLPREDNISOLONE [Suspect]
     Active Substance: METHYLPREDNISOLONE
     Route: 048
     Dates: start: 20250605, end: 20250605
  24. BILASTINE [Suspect]
     Active Substance: BILASTINE
     Indication: Idiopathic histaminergic angioedema
     Route: 048
     Dates: start: 2021, end: 20250602
  25. LEVOCETIRIZINE HYDROCHLORIDE [Concomitant]
     Active Substance: LEVOCETIRIZINE HYDROCHLORIDE
     Indication: Idiopathic histaminergic angioedema
     Route: 048
     Dates: start: 20250602

REACTIONS (1)
  - Palpitations [Recovered/Resolved]

NARRATIVE: CASE EVENT DATE: 20250522
